FAERS Safety Report 23675736 (Version 2)
Quarter: 2024Q2

REPORT INFORMATION
  Report Type: Spontaneous
  Country: JP (occurrence: JP)
  Receive Date: 20240327
  Receipt Date: 20240405
  Transmission Date: 20240716
  Serious: Yes (Other)
  Sender: FDA-Public Use
  Company Number: JP-BRISTOL-MYERS SQUIBB COMPANY-2024-047173

PATIENT
  Age: 73 Year
  Sex: Female
  Weight: 50.7 kg

DRUGS (2)
  1. YERVOY [Suspect]
     Active Substance: IPILIMUMAB
     Indication: Non-small cell lung cancer
     Dates: start: 20221028
  2. OPDIVO [Suspect]
     Active Substance: NIVOLUMAB
     Indication: Non-small cell lung cancer
     Dates: start: 20221028

REACTIONS (8)
  - Coronavirus infection [Unknown]
  - Interstitial lung disease [Unknown]
  - Non-small cell lung cancer [Unknown]
  - Immune-mediated adverse reaction [Unknown]
  - Pyrexia [Unknown]
  - Cytokine release syndrome [Unknown]
  - Pneumonitis [Unknown]
  - Weight decreased [Unknown]

NARRATIVE: CASE EVENT DATE: 20221125
